FAERS Safety Report 19891503 (Version 1)
Quarter: 2021Q3

REPORT INFORMATION
  Report Type: Spontaneous
  Country: DE (occurrence: DE)
  Receive Date: 20210928
  Receipt Date: 20210928
  Transmission Date: 20211014
  Serious: Yes (Hospitalization)
  Sender: FDA-Public Use
  Company Number: PHHY2019DE204981

PATIENT
  Sex: Female
  Weight: 108 kg

DRUGS (4)
  1. PEGFILGRASTIM [Suspect]
     Active Substance: PEGFILGRASTIM
     Indication: PRODUCT USED FOR UNKNOWN INDICATION
     Dosage: UNK (STRENGTH: 6 MG1ST CYCLE)
     Route: 065
     Dates: start: 20190627
  2. PEGFILGRASTIM [Suspect]
     Active Substance: PEGFILGRASTIM
     Dosage: UNK (STRENGTH: 6 MG4TH CYCLE)
     Route: 065
     Dates: start: 20190807
  3. PEGFILGRASTIM [Suspect]
     Active Substance: PEGFILGRASTIM
     Dosage: UNK (STRENGTH: 6 MG 2ND CYCLE)
     Route: 065
     Dates: start: 20190711
  4. PEGFILGRASTIM [Suspect]
     Active Substance: PEGFILGRASTIM
     Dosage: UNK (STRENGTH: 6 MG 3RD CYCLE)
     Route: 065
     Dates: start: 20190729

REACTIONS (2)
  - Vomiting [Recovered/Resolved]
  - Nausea [Recovered/Resolved]

NARRATIVE: CASE EVENT DATE: 20190813
